FAERS Safety Report 5240089-3 (Version None)
Quarter: 2007Q1

REPORT INFORMATION
  Report Type: 
  Country: None (occurrence: None)
  Receive Date: 20070216
  Receipt Date: 20070206
  Transmission Date: 20070707
  Serious: Yes (Other)
  Sender: FDA-Public Use
  Company Number: JP-PFIZER INC-2007010486

PATIENT
  Age: 67 Year
  Sex: Male

DRUGS (12)
  1. ZITHROMAC [Suspect]
     Indication: INFECTION
     Route: 048
     Dates: start: 20070127, end: 20070129
  2. ALL OTHER THERAPEUTIC PRODUCTS [Concomitant]
     Dosage: DAILY DOSE:3GRAM
     Route: 048
     Dates: start: 20070123, end: 20070126
  3. FLOMOX [Concomitant]
     Dosage: TEXT:3 DF
     Route: 048
     Dates: start: 20070202, end: 20070205
  4. CEFTRIAXONE SODIUM [Concomitant]
     Dosage: DAILY DOSE:1GRAM
     Route: 042
     Dates: start: 20070205, end: 20070205
  5. PROPIVERINE HYDROCHLORIDE [Concomitant]
     Dosage: DAILY DOSE:40MG
     Route: 048
  6. MAGNESIUM OXIDE [Concomitant]
     Dosage: DAILY DOSE:1320MG
     Route: 048
  7. DANTRIUM [Concomitant]
     Dosage: DAILY DOSE:25MG
     Route: 048
  8. FAMOTIDINE [Concomitant]
     Dosage: DAILY DOSE:40MG
     Route: 048
  9. BACLOFEN [Concomitant]
     Dosage: DAILY DOSE:15MG
     Route: 048
  10. TETRAMIDE [Concomitant]
     Dosage: DAILY DOSE:30MG
     Route: 048
  11. ALL OTHER THERAPEUTIC PRODUCTS [Concomitant]
     Dosage: TEXT:3 DF
     Route: 048
  12. EPRAZINONE HYDROCHLORIDE [Concomitant]
     Dosage: DAILY DOSE:60MG
     Route: 048

REACTIONS (1)
  - ALVEOLITIS ALLERGIC [None]
